FAERS Safety Report 5967175-4 (Version None)
Quarter: 2008Q4

REPORT INFORMATION
  Report Type: 
  Country: None (occurrence: None)
  Receive Date: 20081125
  Receipt Date: 20081118
  Transmission Date: 20090506
  Serious: Yes (Death, Hospitalization, Other)
  Sender: FDA-Public Use
  Company Number: US-ELI_LILLY_AND_COMPANY-US200807005366

PATIENT
  Age: 58 Year
  Sex: Female
  Weight: 48.98 kg

DRUGS (7)
  1. FORTEO [Suspect]
     Dosage: 20 UG, DAILY (1/D)
     Dates: start: 20070520, end: 20080811
  2. MOBIC [Concomitant]
  3. HORMONES NOS [Concomitant]
  4. TENORMIN [Concomitant]
  5. ULTRAM [Concomitant]
  6. ACIPHEX [Concomitant]
  7. LEXAPRO [Concomitant]

REACTIONS (4)
  - ALVEOLITIS ALLERGIC [None]
  - CARDIAC DISORDER [None]
  - INTERSTITIAL LUNG DISEASE [None]
  - PNEUMONIA [None]
